FAERS Safety Report 7001413-4 (Version None)
Quarter: 2010Q3

REPORT INFORMATION
  Report Type: 
  Country: None (occurrence: None)
  Receive Date: 20100920
  Receipt Date: 20100707
  Transmission Date: 20110219
  Serious: No
  Sender: FDA-Public Use
  Company Number: US-ASTRAZENECA-2010SE31709

PATIENT
  Sex: Female
  Weight: 98 kg

DRUGS (6)
  1. SEROQUEL [Suspect]
     Indication: BIPOLAR I DISORDER
     Route: 048
     Dates: start: 20080101, end: 20080101
  2. SEROQUEL [Suspect]
     Indication: INSOMNIA
     Route: 048
     Dates: start: 20080101, end: 20080101
  3. SEROQUEL [Suspect]
     Route: 048
     Dates: start: 20100501, end: 20100706
  4. SEROQUEL [Suspect]
     Route: 048
     Dates: start: 20100501, end: 20100706
  5. SEROQUEL [Suspect]
     Route: 048
  6. SEROQUEL [Suspect]
     Route: 048

REACTIONS (4)
  - ABNORMAL WEIGHT GAIN [None]
  - INSOMNIA [None]
  - INTENTIONAL DRUG MISUSE [None]
  - WEIGHT INCREASED [None]
